FAERS Safety Report 9699771 (Version 3)
Quarter: 2013Q4

REPORT INFORMATION
  Report Type: Spontaneous
  Country: US (occurrence: US)
  Receive Date: 20131120
  Receipt Date: 20131227
  Transmission Date: 20140711
  Serious: Yes (Hospitalization)
  Sender: FDA-Public Use
  Company Number: US-GILEAD-2013-0088096

PATIENT
  Sex: Female

DRUGS (10)
  1. LETAIRIS [Suspect]
     Indication: PULMONARY HYPERTENSION
     Dosage: 5 MG, QD
     Route: 065
     Dates: start: 20130626
  2. LETAIRIS [Suspect]
     Indication: HEART DISEASE CONGENITAL
  3. REMODULIN [Concomitant]
  4. ADCIRCA [Concomitant]
  5. FUROSEMIDE [Concomitant]
  6. FAMOTIDINE [Concomitant]
  7. POTASSIUM [Concomitant]
  8. PHENERGAN                          /00033001/ [Concomitant]
  9. ZOFRAN                             /00955301/ [Concomitant]
  10. CLARITIN                           /00917501/ [Concomitant]

REACTIONS (6)
  - Aspartate aminotransferase increased [Not Recovered/Not Resolved]
  - Alanine aminotransferase increased [Not Recovered/Not Resolved]
  - Blood bilirubin increased [Not Recovered/Not Resolved]
  - Weight decreased [Recovered/Resolved]
  - Nausea [Recovered/Resolved]
  - Vomiting [Recovered/Resolved]
